FAERS Safety Report 5136585-X (Version None)
Quarter: 2006Q4

REPORT INFORMATION
  Report Type: 
  Country: None (occurrence: None)
  Receive Date: 20061023
  Receipt Date: 20061009
  Transmission Date: 20070319
  Serious: Yes (Other)
  Sender: FDA-Public Use
  Company Number: 2006126523

PATIENT
  Sex: Female

DRUGS (3)
  1. NEURONTIN [Suspect]
  2. GABAPENTIN [Suspect]
  3. ALL OTHER THERAPEUTIC PRODUCTS (ALL OTHER THERAPEUTIC PRODUCTS) [Suspect]

REACTIONS (2)
  - MALAISE [None]
  - REACTION TO DRUG EXCIPIENTS [None]
